FAERS Safety Report 6077403-5 (Version None)
Quarter: 2009Q1

REPORT INFORMATION
  Report Type: 
  Country: None (occurrence: None)
  Receive Date: 20090213
  Receipt Date: 20090206
  Transmission Date: 20090719
  Serious: Yes (Other)
  Sender: FDA-Public Use
  Company Number: US-JNJFOC-20090202524

PATIENT
  Sex: Female
  Weight: 53.98 kg

DRUGS (8)
  1. FENTANYL TRANSDERMAL SYSTEM [Suspect]
     Indication: ARTHRALGIA
     Route: 062
  2. FENTANYL TRANSDERMAL SYSTEM [Suspect]
     Indication: BACK PAIN
     Dosage: 75UG/HR + 75 UG/HR
     Route: 062
  3. DURAGESIC-100 [Suspect]
     Route: 062
  4. DURAGESIC-100 [Suspect]
     Indication: ARTHRALGIA
     Route: 062
  5. DURAGESIC-100 [Suspect]
     Indication: BACK PAIN
     Route: 062
  6. ASPIRIN [Concomitant]
     Indication: MYOCARDIAL INFARCTION
     Route: 048
  7. METHADONE [Concomitant]
     Dosage: EVERY NIGHT
     Route: 048
  8. METHADONE [Concomitant]
     Indication: BACK PAIN
     Dosage: EVERY MORNING
     Route: 048

REACTIONS (6)
  - ANXIETY [None]
  - DRUG INEFFECTIVE [None]
  - DYSPNOEA [None]
  - FIBROMYALGIA [None]
  - HYPERTENSION [None]
  - INCORRECT DRUG ADMINISTRATION DURATION [None]
